FAERS Safety Report 5115496-X (Version None)
Quarter: 2006Q3

REPORT INFORMATION
  Report Type: 
  Country: None (occurrence: None)
  Receive Date: 20060927
  Receipt Date: 20060802
  Transmission Date: 20061208
  Serious: Yes (Hospitalization, Other)
  Sender: FDA-Public Use
  Company Number: PHBS2006JP11814

PATIENT
  Age: 35 Year
  Sex: Female

DRUGS (5)
  1. VOLTAREN [Suspect]
     Indication: NASOPHARYNGITIS
     Dosage: 75 MG/DAY
     Route: 048
     Dates: start: 20060321, end: 20060331
  2. LEVOFLOXACIN [Suspect]
     Indication: NASOPHARYNGITIS
     Dosage: 300 MG/DAY
     Route: 048
     Dates: start: 20060321, end: 20060331
  3. MEDICON [Concomitant]
     Indication: NASOPHARYNGITIS
     Dosage: 45 MG/DAY
     Route: 048
     Dates: start: 20060321, end: 20060331
  4. MUCOSTA [Concomitant]
     Indication: NASOPHARYNGITIS
     Dosage: 300 MG/DAY
     Route: 048
     Dates: start: 20060321, end: 20060331
  5. KAKKON-TO [Concomitant]
     Indication: NASOPHARYNGITIS
     Dosage: 7.5 G/DAY
     Route: 048
     Dates: start: 20060321, end: 20060331

REACTIONS (2)
  - CONVULSION [None]
  - DRUG INTERACTION [None]
